FAERS Safety Report 10641639 (Version 2)
Quarter: 2014Q4

REPORT INFORMATION
  Report Type: Not Available
  Country: US (occurrence: US)
  Receive Date: 20141209
  Receipt Date: 20141209
  Transmission Date: 20150529
  Serious: Yes (Death, Other)
  Sender: FDA-Public Use
  Company Number: US-CELGENE-163-C4047-09100951

PATIENT

DRUGS (5)
  1. PREDNISONE. [Concomitant]
     Active Substance: PREDNISONE
     Indication: PRODUCT USED FOR UNKNOWN INDICATION
     Route: 048
  2. CC-4047 [Suspect]
     Active Substance: POMALIDOMIDE
     Dosage: 0.5-3.5 MG
     Route: 048
  3. CC-4047 [Suspect]
     Active Substance: POMALIDOMIDE
     Dosage: 0.5-3.5 MG
     Route: 048
     Dates: end: 201401
  4. CC-4047 [Suspect]
     Active Substance: POMALIDOMIDE
     Route: 048
  5. CC-4047 [Suspect]
     Active Substance: POMALIDOMIDE
     Indication: MYELOFIBROSIS
     Route: 048
     Dates: start: 200705

REACTIONS (14)
  - Fatigue [Unknown]
  - Lymphadenopathy [Unknown]
  - White blood cell count increased [Unknown]
  - Headache [Unknown]
  - Myelofibrosis [Unknown]
  - Leukaemia [Fatal]
  - Neuropathy peripheral [Unknown]
  - Death [Fatal]
  - Drug ineffective [Unknown]
  - Blood alkaline phosphatase increased [Unknown]
  - Rash [Unknown]
  - Neutropenia [Unknown]
  - Thrombocytopenia [Unknown]
  - Dyspnoea [Unknown]
